FAERS Safety Report 13910039 (Version 1)
Quarter: 2017Q3

REPORT INFORMATION
  Report Type: Spontaneous
  Country: GB (occurrence: GB)
  Receive Date: 20170828
  Receipt Date: 20170828
  Transmission Date: 20171127
  Serious: Yes (Other)
  Sender: FDA-Public Use
  Company Number: GB-CIPLA LTD.-2017GB14874

PATIENT

DRUGS (1)
  1. FINASTERIDE. [Suspect]
     Active Substance: FINASTERIDE
     Indication: BENIGN PROSTATIC HYPERPLASIA
     Dosage: 5 MG, UNK
     Route: 048
     Dates: start: 20170717, end: 20170802

REACTIONS (2)
  - Pollakiuria [Recovering/Resolving]
  - Prostatic pain [Recovering/Resolving]

NARRATIVE: CASE EVENT DATE: 20170730
